FAERS Safety Report 10561621 (Version 2)
Quarter: 2014Q4

REPORT INFORMATION
  Report Type: Spontaneous
  Country: US (occurrence: US)
  Receive Date: 20141103
  Receipt Date: 20141111
  Transmission Date: 20150529
  Serious: Yes (Death, Hospitalization, Other)
  Sender: FDA-Public Use
  Company Number: US-GILEAD-2014-0119983

PATIENT
  Age: 64 Year
  Sex: Male

DRUGS (3)
  1. SOVALDI [Suspect]
     Active Substance: SOFOSBUVIR
     Indication: HEPATITIS C
     Dosage: 1 DF, BID
     Route: 065
     Dates: start: 201409, end: 201409
  2. SOVALDI [Suspect]
     Active Substance: SOFOSBUVIR
     Dosage: 1 DF, QD
     Route: 065
     Dates: start: 20140815, end: 20141014
  3. RIBAVIRIN. [Suspect]
     Active Substance: RIBAVIRIN
     Indication: HEPATITIS C
     Dosage: UNK, BID
     Route: 065
     Dates: end: 20141014

REACTIONS (14)
  - Blood potassium decreased [Unknown]
  - Incontinence [Unknown]
  - Overdose [Recovered/Resolved]
  - Hepatic encephalopathy [Unknown]
  - Mental status changes [Unknown]
  - Respiratory failure [Fatal]
  - Asthenia [Unknown]
  - Hepatic cirrhosis [Fatal]
  - Lung disorder [Fatal]
  - Somnolence [Unknown]
  - Pneumonia staphylococcal [Fatal]
  - Acute respiratory distress syndrome [Fatal]
  - Confusional state [Unknown]
  - Acute kidney injury [Unknown]

NARRATIVE: CASE EVENT DATE: 201409
